FAERS Safety Report 21529063 (Version 2)
Quarter: 2022Q4

REPORT INFORMATION
  Report Type: Spontaneous
  Country: US (occurrence: US)
  Receive Date: 20221031
  Receipt Date: 20221125
  Transmission Date: 20230113
  Serious: Yes (Other)
  Sender: FDA-Public Use
  Company Number: US-ELI_LILLY_AND_COMPANY-US202210008266

PATIENT
  Sex: Female

DRUGS (2)
  1. EVISTA [Suspect]
     Active Substance: RALOXIFENE HYDROCHLORIDE
     Indication: Breast cancer
     Dosage: UNK UNK, UNKNOWN
     Route: 065
  2. EVISTA [Suspect]
     Active Substance: RALOXIFENE HYDROCHLORIDE
     Indication: Osteoporosis

REACTIONS (5)
  - Breast cancer [Unknown]
  - Oropharyngeal pain [Unknown]
  - Tongue coated [Unknown]
  - Abdominal discomfort [Unknown]
  - Illness [Unknown]

NARRATIVE: CASE EVENT DATE: 20150101
